FAERS Safety Report 12469991 (Version 1)
Quarter: 2016Q2

REPORT INFORMATION
  Report Type: Spontaneous
  Country: US (occurrence: US)
  Receive Date: 20160615
  Receipt Date: 20160615
  Transmission Date: 20160815
  Serious: No
  Sender: FDA-Public Use
  Company Number: US-ASTRAZENECA-2010SE16337

PATIENT
  Sex: Female

DRUGS (2)
  1. SYMBICORT [Suspect]
     Active Substance: BUDESONIDE\FORMOTEROL FUMARATE DIHYDRATE
     Indication: ASTHMA
     Dosage: 160/4.5 MCG, ONE PUFF TWO TIMES A DAY
     Route: 055
     Dates: start: 20100412
  2. SYMBICORT [Suspect]
     Active Substance: BUDESONIDE\FORMOTEROL FUMARATE DIHYDRATE
     Indication: CHRONIC OBSTRUCTIVE PULMONARY DISEASE
     Dosage: 160/4.5 MCG, ONE PUFF TWO TIMES A DAY
     Route: 055
     Dates: start: 20100412

REACTIONS (5)
  - Nasopharyngitis [Unknown]
  - Adverse event [Unknown]
  - Drug ineffective [Unknown]
  - Product quality issue [Unknown]
  - Intentional product misuse [Unknown]
